FAERS Safety Report 11601283 (Version 3)
Quarter: 2016Q2

REPORT INFORMATION
  Report Type: Spontaneous
  Country: US (occurrence: US)
  Receive Date: 20151006
  Receipt Date: 20160509
  Transmission Date: 20160815
  Serious: Yes (Hospitalization, Other)
  Sender: FDA-Public Use
  Company Number: US-AMGEN-USASP2015020565

PATIENT
  Age: 82 Year
  Sex: Female

DRUGS (1)
  1. PROLIA [Suspect]
     Active Substance: DENOSUMAB
     Indication: OSTEOPOROSIS POSTMENOPAUSAL
     Dosage: UNK, Q6MO
     Route: 065
     Dates: start: 201501

REACTIONS (13)
  - Bone density abnormal [Unknown]
  - Pain in extremity [Not Recovered/Not Resolved]
  - Muscular weakness [Unknown]
  - Pelvic fracture [Unknown]
  - Gastrooesophageal reflux disease [Unknown]
  - Hip fracture [Unknown]
  - Fall [Unknown]
  - Walking aid user [Not Recovered/Not Resolved]
  - Balance disorder [Unknown]
  - Musculoskeletal pain [Not Recovered/Not Resolved]
  - Spinal osteoarthritis [Unknown]
  - Back pain [Not Recovered/Not Resolved]
  - Gait disturbance [Unknown]

NARRATIVE: CASE EVENT DATE: 201501
